FAERS Safety Report 21091058 (Version 10)
Quarter: 2023Q1

REPORT INFORMATION
  Report Type: Report from Study
  Country: PA (occurrence: PA)
  Receive Date: 20220716
  Receipt Date: 20230314
  Transmission Date: 20230417
  Serious: Yes (Hospitalization, Other)
  Sender: FDA-Public Use
  Company Number: PA-NOVARTISPH-NVSC2022PA158663

PATIENT
  Age: 58 Year
  Sex: Female

DRUGS (9)
  1. KISQALI [Suspect]
     Active Substance: RIBOCICLIB
     Indication: Breast cancer metastatic
     Dosage: 200 MG, QD
     Route: 048
     Dates: start: 202110
  2. KISQALI [Suspect]
     Active Substance: RIBOCICLIB
     Dosage: UNK (3)
     Route: 065
     Dates: start: 202110, end: 202112
  3. KISQALI [Suspect]
     Active Substance: RIBOCICLIB
     Dosage: 600 MG, QD (DEC 2021, 7 MONTHS  AGO)
     Route: 048
     Dates: start: 20211201
  4. KISQALI [Suspect]
     Active Substance: RIBOCICLIB
     Dosage: 200 MG, QD
     Route: 048
     Dates: start: 2021
  5. KISQALI [Suspect]
     Active Substance: RIBOCICLIB
     Dosage: 600 MG, QD
     Route: 048
     Dates: start: 202112
  6. KISQALI [Suspect]
     Active Substance: RIBOCICLIB
     Dosage: 400 MG, QD
     Route: 048
     Dates: start: 202112
  7. ANASTROZOLE [Suspect]
     Active Substance: ANASTROZOLE
     Indication: Product used for unknown indication
     Dosage: UNK
     Route: 065
  8. ARIMIDEX [Concomitant]
     Active Substance: ANASTROZOLE
     Indication: Product used for unknown indication
     Dosage: UNK
     Route: 065
     Dates: start: 202111
  9. UNSPECIFIED INGREDIENT [Concomitant]
     Active Substance: UNSPECIFIED INGREDIENT
     Indication: Product used for unknown indication
     Route: 065

REACTIONS (31)
  - Hypertension [Unknown]
  - Skin burning sensation [Unknown]
  - Metastases to lung [Unknown]
  - Breast cancer metastatic [Unknown]
  - Malignant neoplasm progression [Unknown]
  - Anxiety [Unknown]
  - Stress [Unknown]
  - Neck pain [Unknown]
  - Depression [Unknown]
  - Crying [Unknown]
  - Feeling abnormal [Unknown]
  - Skin atrophy [Unknown]
  - Skin irritation [Unknown]
  - Nervousness [Unknown]
  - Skin exfoliation [Unknown]
  - Conjunctivitis [Unknown]
  - Eye irritation [Unknown]
  - Skin discolouration [Not Recovered/Not Resolved]
  - Dehydration [Recovering/Resolving]
  - Hypersensitivity [Unknown]
  - Feeling hot [Unknown]
  - Skin disorder [Unknown]
  - Skin lesion [Unknown]
  - Fluid retention [Unknown]
  - Malaise [Unknown]
  - Infection [Unknown]
  - Pruritus [Unknown]
  - Alopecia [Unknown]
  - Peripheral swelling [Unknown]
  - Haemoglobin decreased [Unknown]
  - Pyrexia [Unknown]

NARRATIVE: CASE EVENT DATE: 20220101
